FAERS Safety Report 4611850-0 (Version None)
Quarter: 2005Q1

REPORT INFORMATION
  Report Type: 
  Country: None (occurrence: None)
  Receive Date: 20050316
  Receipt Date: 20050228
  Transmission Date: 20050727
  Serious: Yes (Hospitalization, Other)
  Sender: FDA-Public Use
  Company Number: US_0503113830

PATIENT
  Age: 49 Year
  Sex: Female

DRUGS (10)
  1. FLUOXETINE HCL [Suspect]
     Dosage: 10 MG DAY
  2. HYDROCHLOROTHIAZIDE [Concomitant]
  3. GABAPENTIN [Concomitant]
  4. PROPRANOLOL EXTENDED RELEASE [Concomitant]
  5. CARISOPRODOL [Concomitant]
  6. IMIPRAMINE [Concomitant]
  7. MIRTAZAPINE [Concomitant]
  8. LEVOFLOXACIN [Concomitant]
  9. FERROUS SULFATE TAB [Concomitant]
  10. LORATADINE W/ PSEUDOEPHEDRINE [Concomitant]

REACTIONS (8)
  - BLOOD POTASSIUM DECREASED [None]
  - CHEST DISCOMFORT [None]
  - DRUG INTERACTION [None]
  - DYSPNOEA [None]
  - ELECTROCARDIOGRAM QT PROLONGED [None]
  - ESCHERICHIA SEPSIS [None]
  - PYELONEPHRITIS [None]
  - UROSEPSIS [None]
